FAERS Safety Report 15967199 (Version 1)
Quarter: 2019Q1

REPORT INFORMATION
  Report Type: Spontaneous
  Country: US (occurrence: US)
  Receive Date: 20190215
  Receipt Date: 20190215
  Transmission Date: 20190418
  Serious: No
  Sender: FDA-Public Use
  Company Number: US-SA-2019SA040098

PATIENT

DRUGS (7)
  1. CIMZIA [Suspect]
     Active Substance: CERTOLIZUMAB PEGOL
  2. METHOTREXATE. [Suspect]
     Active Substance: METHOTREXATE
  3. ORENCIA [Suspect]
     Active Substance: ABATACEPT
  4. ARAVA [Suspect]
     Active Substance: LEFLUNOMIDE
  5. RITUXAN [Suspect]
     Active Substance: RITUXIMAB
  6. XELJANZ [Concomitant]
     Active Substance: TOFACITINIB CITRATE
  7. ACTEMRA [Suspect]
     Active Substance: TOCILIZUMAB

REACTIONS (2)
  - Infection [Unknown]
  - Drug ineffective [Unknown]
